FAERS Safety Report 7175400-X (Version None)
Quarter: 2010Q4

REPORT INFORMATION
  Report Type: 
  Country: None (occurrence: None)
  Receive Date: 20101207
  Receipt Date: 20101202
  Transmission Date: 20110411
  Serious: Yes (Death)
  Sender: FDA-Public Use
  Company Number: 2010US004802

PATIENT
  Age: 55 Year
  Sex: Male

DRUGS (2)
  1. AMBISOME [Suspect]
     Indication: PRODUCT USED FOR UNKNOWN INDICATION
     Dosage: 400 MG, UID/QD, IV NOS
     Route: 042
     Dates: start: 20100611, end: 20100615
  2. MYCAMINE [Suspect]
     Indication: PRODUCT USED FOR UNKNOWN INDICATION
     Dosage: 100 MG, UID/QD, IV NOS
     Route: 042
     Dates: start: 20100611, end: 20100615

REACTIONS (1)
  - DEATH [None]
